FAERS Safety Report 6221521-5 (Version None)
Quarter: 2009Q2

REPORT INFORMATION
  Report Type: 
  Country: None (occurrence: None)
  Receive Date: 20090610
  Receipt Date: 20090601
  Transmission Date: 20091009
  Serious: Yes (Hospitalization, Other)
  Sender: FDA-Public Use
  Company Number: PHEH2009US02925

PATIENT
  Sex: Female
  Weight: 59 kg

DRUGS (13)
  1. RECLAST [Suspect]
     Indication: OSTEOPENIA
     Dosage: 5 MG, ONCE
     Route: 042
     Dates: start: 20080110
  2. RECLAST [Suspect]
     Indication: OSTEOPOROSIS
  3. SYNTHROID [Concomitant]
     Indication: THYROID DISORDER
     Dosage: 100 MG, UNK
  4. CALCIUM [Concomitant]
     Indication: BONE DISORDER
     Dosage: 1500 MG, UNK
  5. GLUCOSAMINE [Concomitant]
  6. MULTI-VITAMINS [Concomitant]
  7. PROTONIX [Concomitant]
  8. VITAMIN D [Concomitant]
     Indication: BONE DISORDER
     Dosage: 800 MG, UNK
  9. LIPITOR [Concomitant]
  10. BETIMOL [Concomitant]
  11. PREDNISONE [Concomitant]
     Indication: COLITIS ULCERATIVE
     Dosage: 40 MG, UNK
  12. PREDNISONE [Concomitant]
     Dosage: 60 MG, UNK
  13. REMICADE [Concomitant]
     Indication: COLITIS ULCERATIVE
     Dosage: 5 MG/KG, QMO
     Dates: start: 20080224, end: 20080613

REACTIONS (14)
  - ASTHENIA [None]
  - COLECTOMY [None]
  - COLITIS [None]
  - DEHYDRATION [None]
  - DIARRHOEA [None]
  - DIARRHOEA HAEMORRHAGIC [None]
  - ILEOSTOMY [None]
  - INFLUENZA LIKE ILLNESS [None]
  - MUSCLE SPASMS [None]
  - MUSCULOSKELETAL PAIN [None]
  - PYREXIA [None]
  - QUALITY OF LIFE DECREASED [None]
  - RECTAL HAEMORRHAGE [None]
  - WEIGHT DECREASED [None]
